FAERS Safety Report 6341293-3 (Version None)
Quarter: 2009Q3

REPORT INFORMATION
  Report Type: 
  Country: None (occurrence: None)
  Receive Date: 20090904
  Receipt Date: 20090707
  Transmission Date: 20100115
  Serious: No
  Sender: FDA-Public Use
  Company Number: A0796743A

PATIENT
  Sex: Male

DRUGS (1)
  1. ROPINIROLE [Suspect]
     Indication: DRUG USE FOR UNKNOWN INDICATION
     Route: 065

REACTIONS (4)
  - ASTHENIA [None]
  - MALAISE [None]
  - MOVEMENT DISORDER [None]
  - VOMITING [None]
